FAERS Safety Report 10253123 (Version 2)
Quarter: 2015Q4

REPORT INFORMATION
  Report Type: Spontaneous
  Country: US (occurrence: US)
  Receive Date: 20140623
  Receipt Date: 20151102
  Transmission Date: 20160304
  Serious: Yes (Other)
  Sender: FDA-Public Use
  Company Number: US-GLAXOSMITHKLINE-A1077682A

PATIENT
  Age: 55 Year
  Sex: Female

DRUGS (16)
  1. TORADOL [Concomitant]
     Active Substance: KETOROLAC TROMETHAMINE
  2. PREDNISONE. [Concomitant]
     Active Substance: PREDNISONE
  3. VENTOLIN HFA [Suspect]
     Active Substance: ALBUTEROL SULFATE
     Indication: ASTHMA
  4. FOSAMAX [Concomitant]
     Active Substance: ALENDRONATE SODIUM
  5. METHYLPHENIDATE. [Concomitant]
     Active Substance: METHYLPHENIDATE
  6. OXYCODONE [Concomitant]
     Active Substance: OXYCODONE
  7. PREDNISONE. [Concomitant]
     Active Substance: PREDNISONE
     Route: 048
  8. ADVAIR HFA [Suspect]
     Active Substance: FLUTICASONE PROPIONATE\SALMETEROL XINAFOATE
     Dosage: UNK UNK, U
     Dates: start: 2005
  9. IBUPROFEN. [Concomitant]
     Active Substance: IBUPROFEN
  10. LEVALBUTEROL NEBULIZER [Concomitant]
     Active Substance: LEVALBUTEROL
  11. ADVAIR HFA [Suspect]
     Active Substance: FLUTICASONE PROPIONATE\SALMETEROL XINAFOATE
     Indication: CHRONIC OBSTRUCTIVE PULMONARY DISEASE
     Dosage: 1 PUFF(S), BID
     Route: 055
     Dates: start: 2010
  12. VENTOLIN HFA [Suspect]
     Active Substance: ALBUTEROL SULFATE
     Indication: CHRONIC OBSTRUCTIVE PULMONARY DISEASE
     Dosage: UNK, U
     Dates: start: 20141129
  13. METHADONE [Concomitant]
     Active Substance: METHADONE HYDROCHLORIDE
  14. SOMA [Concomitant]
     Active Substance: CARISOPRODOL
  15. PROAIR HFA [Concomitant]
     Active Substance: ALBUTEROL SULFATE
  16. BUDESONIDE. [Concomitant]
     Active Substance: BUDESONIDE

REACTIONS (12)
  - Back pain [Not Recovered/Not Resolved]
  - Spinal compression fracture [Not Recovered/Not Resolved]
  - Disability [Unknown]
  - Rib fracture [Not Recovered/Not Resolved]
  - Musculoskeletal chest pain [Not Recovered/Not Resolved]
  - Kyphosis [Unknown]
  - Fall [Unknown]
  - Drug dose omission [Unknown]
  - Dyspnoea [Unknown]
  - Arthritis [Unknown]
  - Movement disorder [Unknown]
  - Pain [Not Recovered/Not Resolved]

NARRATIVE: CASE EVENT DATE: 201406
